FAERS Safety Report 22000822 (Version 7)
Quarter: 2024Q3

REPORT INFORMATION
  Report Type: Spontaneous
  Country: IN (occurrence: IN)
  Receive Date: 20230216
  Receipt Date: 20240822
  Transmission Date: 20241016
  Serious: Yes (Other)
  Sender: PFIZER
  Company Number: IN-PFIZER INC-202101761148

PATIENT
  Age: 64 Year
  Sex: Female
  Weight: 73.7 kg

DRUGS (9)
  1. PALBOCICLIB [Suspect]
     Active Substance: PALBOCICLIB
     Indication: Breast cancer metastatic
     Dosage: 125 MG, CYCLIC (1 TABLET ONCE DAILY 3 WEEKS ON 1 WEEK OFF)
     Route: 048
     Dates: start: 20211116
  2. PALBOCICLIB [Suspect]
     Active Substance: PALBOCICLIB
     Dosage: 100 MG, CYCLIC (1-0-0 3 WEEKS ON-} 1 WEEK OFF X 3 MONTHS)
     Route: 048
  3. PALBOCICLIB [Suspect]
     Active Substance: PALBOCICLIB
     Dosage: 100 MG, CYCLIC (100 MG, OD (1-0-0 3WEEKS ON 1WEEK OFF, 4 MONTHS))
     Route: 048
  4. FEMARA [Concomitant]
     Active Substance: LETROZOLE
     Dosage: 2.5 MG, 1X/DAY (1-0-0, 4 MONTHS)
     Dates: start: 20211116
  5. CALCIUM\CHOLECALCIFEROL [Concomitant]
     Active Substance: CALCIUM\CHOLECALCIFEROL
     Dosage: 500 MG, 1X/DAY (0-1-0, 4 MONTHS)
  6. D RISE [Concomitant]
     Dosage: 60000 IU ONCE A MONTH X 4 MONTHS
  7. ZOLEDRONIC [Concomitant]
     Active Substance: ZOLEDRONIC ACID
     Dosage: UNK (ONCE IN 3 MONTHS)
  8. LETROZOLE [Concomitant]
     Active Substance: LETROZOLE
     Indication: Breast cancer metastatic
     Dosage: UNK
     Dates: start: 202111
  9. LETROZOLE [Concomitant]
     Active Substance: LETROZOLE
     Dosage: 2.5 MG (1-0-0 X 3 MONTHS)

REACTIONS (22)
  - Diabetes mellitus [Unknown]
  - Insomnia [Unknown]
  - Dyspepsia [Unknown]
  - Hypotension [Unknown]
  - Neck pain [Unknown]
  - Neoplasm progression [Unknown]
  - White blood cell count decreased [Recovering/Resolving]
  - Blood cholesterol increased [Unknown]
  - Blood triglycerides increased [Unknown]
  - Very low density lipoprotein increased [Unknown]
  - Low density lipoprotein increased [Unknown]
  - Total cholesterol/HDL ratio increased [Unknown]
  - Blood alkaline phosphatase increased [Unknown]
  - Neutrophil percentage decreased [Unknown]
  - Platelet count decreased [Unknown]
  - Haemoglobin decreased [Not Recovered/Not Resolved]
  - Heart rate increased [Unknown]
  - Renal cyst [Unknown]
  - Spleen disorder [Unknown]
  - Lymphocyte percentage increased [Not Recovered/Not Resolved]
  - Blood thyroid stimulating hormone increased [Unknown]
  - Hepatic steatosis [Unknown]

NARRATIVE: CASE EVENT DATE: 20210101
